FAERS Safety Report 9114860 (Version 2)
Quarter: 2013Q2

REPORT INFORMATION
  Report Type: Report from Study
  Country: DE (occurrence: DE)
  Receive Date: 20130208
  Receipt Date: 20130601
  Transmission Date: 20140414
  Serious: Yes (Hospitalization)
  Sender: FDA-Public Use
  Company Number: DE-ROCHE-1187229

PATIENT
  Age: 65 Year
  Sex: Female
  Weight: 78 kg

DRUGS (2)
  1. RITUXIMAB [Suspect]
     Indication: B-CELL LYMPHOMA
     Dosage: MOST RECENT DOSE RECEIVED ON 13/NOV/2012, PERMANENTLY DISCONTINUED
     Route: 042
     Dates: start: 20120521, end: 20121114
  2. BENDAMUSTINE [Suspect]
     Indication: B-CELL LYMPHOMA
     Dosage: MOST RECENT DOSE RECEIVED ON 15/OCT/2012
     Route: 042
     Dates: start: 20120521

REACTIONS (1)
  - Colitis [Recovered/Resolved]
